FAERS Safety Report 15497136 (Version 1)
Quarter: 2018Q4

REPORT INFORMATION
  Report Type: Report from Study
  Country: CA (occurrence: CA)
  Receive Date: 20181015
  Receipt Date: 20181015
  Transmission Date: 20190205
  Serious: Yes (Hospitalization, Disabling, Other)
  Sender: FDA-Public Use
  Company Number: CA-EMD SERONO-7136559

PATIENT
  Age: 53 Year
  Sex: Male

DRUGS (2)
  1. MOTRIN [Concomitant]
     Active Substance: IBUPROFEN
     Indication: PRODUCT USED FOR UNKNOWN INDICATION
  2. REBIF [Suspect]
     Active Substance: INTERFERON BETA-1A
     Indication: MULTIPLE SCLEROSIS
     Dosage: 132 (UNSPECIFIED UNITS) MULTI DOSE CARTRIDGES
     Route: 058
     Dates: start: 20100208

REACTIONS (4)
  - Aneurysm [Unknown]
  - Cerebrovascular accident [Unknown]
  - Fall [Unknown]
  - Dural arteriovenous fistula [Unknown]

NARRATIVE: CASE EVENT DATE: 20120519
